FAERS Safety Report 7982670-4 (Version None)
Quarter: 2011Q4

REPORT INFORMATION
  Report Type: 
  Country: None (occurrence: None)
  Receive Date: 20111215
  Receipt Date: 20111209
  Transmission Date: 20120403
  Serious: Yes (Hospitalization)
  Sender: FDA-Public Use
  Company Number: DE-ROCHE-1022075

PATIENT
  Age: 5 Year
  Sex: Male
  Weight: 29 kg

DRUGS (2)
  1. CEFTRIAXONE [Suspect]
     Indication: BORRELIA INFECTION
  2. CEFTRIAXONE [Suspect]
     Indication: MENINGITIS
     Route: 042
     Dates: start: 20110713, end: 20110719

REACTIONS (1)
  - CHOLELITHIASIS [None]
